FAERS Safety Report 7276546-8 (Version None)
Quarter: 2011Q1

REPORT INFORMATION
  Report Type: 
  Country: None (occurrence: None)
  Receive Date: 20110204
  Receipt Date: 20110130
  Transmission Date: 20110831
  Serious: Yes (Other)
  Sender: FDA-Public Use
  Company Number: US-PFIZER INC-2011021166

PATIENT
  Sex: Male

DRUGS (1)
  1. DIMETAPP COLD AND ALLERGY [Suspect]
     Indication: NASOPHARYNGITIS
     Dosage: UNK
     Route: 051
     Dates: start: 20110130

REACTIONS (5)
  - INCORRECT ROUTE OF DRUG ADMINISTRATION [None]
  - ABNORMAL BEHAVIOUR [None]
  - AGGRESSION [None]
  - PAIN IN EXTREMITY [None]
  - CRYING [None]
